FAERS Safety Report 10048601 (Version 2)
Quarter: 2014Q2

REPORT INFORMATION
  Report Type: Spontaneous
  Country: US (occurrence: US)
  Receive Date: 20140331
  Receipt Date: 20140425
  Transmission Date: 20141212
  Serious: Yes (Hospitalization, Disabling)
  Sender: FDA-Public Use
  Company Number: US-009507513-1403USA012957

PATIENT
  Sex: Male

DRUGS (3)
  1. ZETIA [Suspect]
     Indication: BLOOD CHOLESTEROL INCREASED
     Dosage: 10 MG, QD
     Route: 048
     Dates: start: 200310, end: 20131228
  2. DIURETIC (UNSPECIFIED) [Concomitant]
  3. POTASSIUM (UNSPECIFIED) [Concomitant]

REACTIONS (3)
  - Nerve injury [Recovering/Resolving]
  - Fall [Recovering/Resolving]
  - Hypoaesthesia [Recovering/Resolving]
